FAERS Safety Report 22892638 (Version 4)
Quarter: 2024Q1

REPORT INFORMATION
  Report Type: Spontaneous
  Country: US (occurrence: US)
  Receive Date: 20230901
  Receipt Date: 20240109
  Transmission Date: 20240410
  Serious: No
  Sender: FDA-Public Use
  Company Number: US-Ipsen Biopharmaceuticals, Inc.-2023-18512

PATIENT
  Age: 35 Year
  Sex: Male
  Weight: 74.8 kg

DRUGS (16)
  1. TAZVERIK [Suspect]
     Active Substance: TAZEMETOSTAT HYDROBROMIDE
     Indication: Skin cancer
     Dosage: 800 MG TWICE A DAY
     Route: 048
     Dates: start: 202306
  2. TAZVERIK [Suspect]
     Active Substance: TAZEMETOSTAT HYDROBROMIDE
     Indication: Off label use
  3. ACETAMINOPHEN [Concomitant]
     Active Substance: ACETAMINOPHEN
  4. CLINDAMYCIN [Concomitant]
     Active Substance: CLINDAMYCIN
  5. DEXAMETHASONE [Concomitant]
     Active Substance: DEXAMETHASONE
  6. DOXYCYCLINE [Concomitant]
     Active Substance: DOXYCYCLINE
  7. ONDANSETRON [Concomitant]
     Active Substance: ONDANSETRON
  8. PROCHLORPERAZINE [Concomitant]
     Active Substance: PROCHLORPERAZINE
  9. SENNA [Concomitant]
     Active Substance: SENNA LEAF\SENNOSIDES\SENNOSIDES A AND B
  10. TADALAFIL [Concomitant]
     Active Substance: TADALAFIL
  11. TRIAMCINOLONE [Concomitant]
     Active Substance: TRIAMCINOLONE
  12. OXYCODONE [Concomitant]
     Active Substance: OXYCODONE
  13. MORPHINE SULFATE [Concomitant]
     Active Substance: MORPHINE SULFATE
  14. MAGNESIUM [Concomitant]
     Active Substance: MAGNESIUM
  15. CLARITIN [Concomitant]
     Active Substance: LORATADINE
  16. VITAMINS [Concomitant]
     Active Substance: VITAMINS

REACTIONS (5)
  - Infection [Recovering/Resolving]
  - Insomnia [Not Recovered/Not Resolved]
  - Brain fog [Unknown]
  - Product dose omission issue [Unknown]
  - Off label use [Unknown]

NARRATIVE: CASE EVENT DATE: 20230710
